FAERS Safety Report 13614588 (Version 1)
Quarter: 2017Q2

REPORT INFORMATION
  Report Type: Spontaneous
  Country: US (occurrence: US)
  Receive Date: 20170606
  Receipt Date: 20170606
  Transmission Date: 20170830
  Serious: No
  Sender: FDA-Public Use
  Company Number: US-AUROBINDO-AUR-APU-2016-08082

PATIENT
  Age: 83 Year
  Sex: Female
  Weight: 68.27 kg

DRUGS (2)
  1. ACETAMINOPHEN AND CODEINE 300 MG/60 MG [Suspect]
     Active Substance: ACETAMINOPHEN\CODEINE PHOSPHATE
     Indication: PAIN
     Dosage: UNK
     Route: 065
  2. XANAX [Concomitant]
     Active Substance: ALPRAZOLAM
     Indication: PRODUCT USED FOR UNKNOWN INDICATION
     Route: 065

REACTIONS (5)
  - Product substitution issue [Recovered/Resolved]
  - Product substitution issue [None]
  - Drug ineffective [Recovered/Resolved]
  - Stupor [Recovered/Resolved]
  - Feeling abnormal [Recovered/Resolved]
